FAERS Safety Report 17199184 (Version 3)
Quarter: 2020Q1

REPORT INFORMATION
  Report Type: Report from Study
  Country: None (occurrence: CH)
  Receive Date: 20191225
  Receipt Date: 20200116
  Transmission Date: 20200409
  Serious: Yes (Hospitalization)
  Sender: FDA-Public Use
  Company Number: CH-ABBVIE-19K-151-3205338-00

PATIENT
  Age: 80 Year
  Sex: Female

DRUGS (4)
  1. DUODOPA [Suspect]
     Active Substance: CARBIDOPA\LEVODOPA
     Dosage: MD 4.5ML, CR-DAY 3.7 ML/H, CR-NIGHT 2.2 ML/H, ED 2.2 ML?24H THERAPY
     Route: 050
     Dates: start: 20191218, end: 20191218
  2. DUODOPA [Suspect]
     Active Substance: CARBIDOPA\LEVODOPA
     Indication: PARKINSON^S DISEASE
     Route: 050
     Dates: start: 20170703, end: 20191024
  3. DUODOPA [Suspect]
     Active Substance: CARBIDOPA\LEVODOPA
     Dosage: MD 4.5ML,CR-DAY 3.4 ML/H, CR-NIGHT 2.2 ML/H, ED 2 ML?24H THERAPY
     Route: 050
     Dates: start: 20191024, end: 20191118
  4. DUODOPA [Suspect]
     Active Substance: CARBIDOPA\LEVODOPA
     Dosage: MD 4.5ML, CR-DAY 3.7 ML/H, CR-NIGHT 2.2 ML/H, ED 2.2 ML?24H THERAPY
     Route: 050
     Dates: start: 20191218

REACTIONS (3)
  - Device dislocation [Recovered/Resolved]
  - Stoma site discharge [Unknown]
  - Gastric fistula [Recovered/Resolved]

NARRATIVE: CASE EVENT DATE: 20191217
